FAERS Safety Report 19958686 (Version 1)
Quarter: 2021Q4

REPORT INFORMATION
  Report Type: Spontaneous
  Country: JP (occurrence: JP)
  Receive Date: 20211015
  Receipt Date: 20211015
  Transmission Date: 20220303
  Serious: Yes (Other)
  Sender: FDA-Public Use
  Company Number: JP-PFIZER INC-202101312979

PATIENT
  Age: 24 Year
  Sex: Female

DRUGS (10)
  1. METHYLPREDNISOLONE SODIUM SUCCINATE [Suspect]
     Active Substance: METHYLPREDNISOLONE SODIUM SUCCINATE
  2. PREDNISOLONE [Suspect]
     Active Substance: PREDNISOLONE
     Dosage: 86 MG, DAILY
  3. PREDNISOLONE [Suspect]
     Active Substance: PREDNISOLONE
     Dosage: 162 MG, DAILY
  4. PREDNISOLONE [Suspect]
     Active Substance: PREDNISOLONE
     Dosage: 73 MG, DAILY
  5. PREDNISOLONE [Suspect]
     Active Substance: PREDNISOLONE
     Dosage: 27 MG, DAILY
  6. PREDNISOLONE [Suspect]
     Active Substance: PREDNISOLONE
     Dosage: 31 MG, DAILY
  7. CYCLOSPORINE [Concomitant]
     Active Substance: CYCLOSPORINE
     Dosage: 3 MG/KG
  8. MIZORIBINE [Concomitant]
     Active Substance: MIZORIBINE
  9. CYCLOPHOSPHAMIDE [Concomitant]
     Active Substance: CYCLOPHOSPHAMIDE
     Dosage: 2 MG/KG
  10. TACROLIMUS [Concomitant]
     Active Substance: TACROLIMUS

REACTIONS (4)
  - Spinal compression fracture [Unknown]
  - Osteonecrosis [Unknown]
  - Steroid diabetes [Unknown]
  - Drug resistance [Unknown]
